FAERS Safety Report 10166236 (Version 2)
Quarter: 2014Q2

REPORT INFORMATION
  Report Type: Report from Study
  Country: US (occurrence: US)
  Receive Date: 20140512
  Receipt Date: 20140604
  Transmission Date: 20141212
  Serious: Yes (Other)
  Sender: FDA-Public Use
  Company Number: US-JNJFOC-20140502823

PATIENT
  Age: 16 Year
  Sex: Male
  Weight: 86.18 kg

DRUGS (6)
  1. SIMPONI [Suspect]
     Indication: COLITIS ULCERATIVE
     Route: 058
     Dates: start: 201310, end: 20140211
  2. LOMOTIL [Concomitant]
     Indication: DIARRHOEA
     Route: 048
  3. FAMVIR (FAMCICLOVIR) [Concomitant]
     Indication: ORAL HERPES
     Route: 048
  4. LEVBID [Concomitant]
     Indication: MUSCLE SPASMS
     Route: 048
  5. PRILOSEC [Concomitant]
     Indication: GASTROOESOPHAGEAL REFLUX DISEASE
     Route: 048
  6. AMITRIPTYLINE [Concomitant]
     Indication: ABDOMINAL PAIN
     Route: 048

REACTIONS (2)
  - Biliary tract disorder [Not Recovered/Not Resolved]
  - Injection site pain [Unknown]
